FAERS Safety Report 7022130-0 (Version None)
Quarter: 2010Q3

REPORT INFORMATION
  Report Type: 
  Country: None (occurrence: None)
  Receive Date: 20100930
  Receipt Date: 20100916
  Transmission Date: 20110219
  Serious: Yes (Other)
  Sender: FDA-Public Use
  Company Number: PHHY2010DE62915

PATIENT
  Sex: Male

DRUGS (2)
  1. ZOMETA [Suspect]
     Indication: PROSTATE CANCER
  2. ANTIBIOTICS [Concomitant]
     Route: 042

REACTIONS (3)
  - OSTEITIS [None]
  - TOOTH EXTRACTION [None]
  - WOUND DRAINAGE [None]
